FAERS Safety Report 23736775 (Version 2)
Quarter: 2024Q4

REPORT INFORMATION
  Report Type: Report from Study
  Country: US (occurrence: US)
  Receive Date: 20240412
  Receipt Date: 20241014
  Transmission Date: 20250115
  Serious: Yes (Death, Other)
  Sender: ABBVIE
  Company Number: US-ABBVIE-5715947

PATIENT
  Age: 84 Year
  Sex: Male

DRUGS (1)
  1. HUMIRA [Suspect]
     Active Substance: ADALIMUMAB
     Indication: Product used for unknown indication
     Dosage: FORM STRENGTH 40 MILLIGRAM?CITRATE FREE
     Route: 058
     Dates: start: 20170216, end: 2023

REACTIONS (5)
  - Death [Fatal]
  - Parkinson^s disease [Unknown]
  - Dementia Alzheimer^s type [Unknown]
  - Diabetes mellitus [Unknown]
  - Psoriasis [Unknown]

NARRATIVE: CASE EVENT DATE: 20240326
